FAERS Safety Report 21402123 (Version 2)
Quarter: 2022Q4

REPORT INFORMATION
  Report Type: Spontaneous
  Country: DE (occurrence: DE)
  Receive Date: 20221003
  Receipt Date: 20221020
  Transmission Date: 20230113
  Serious: Yes (Hospitalization, Other)
  Sender: FDA-Public Use
  Company Number: None

PATIENT
  Age: 75 Year
  Sex: Female

DRUGS (10)
  1. CLOPIDOGREL [Suspect]
     Active Substance: CLOPIDOGREL BISULFATE
     Indication: Product used for unknown indication
     Dosage: 75 MG, 1-0-0-0
     Route: 048
  2. FLUOROURACIL [Suspect]
     Active Substance: FLUOROURACIL
     Indication: Product used for unknown indication
     Dosage: UNKNOWN
     Route: 042
  3. ESZOPICLONE [Concomitant]
     Active Substance: ESZOPICLONE
     Indication: Product used for unknown indication
     Dosage: 0-0-0-1
     Route: 048
  4. FERROFOLIN [Concomitant]
     Indication: Product used for unknown indication
     Dosage: 1-0-0-0
     Route: 048
  5. Levothyroxin-sodium [Concomitant]
     Indication: Product used for unknown indication
     Dosage: 200 G, 0.5-0-0-0
     Route: 048
  6. METAMIZOLE [Concomitant]
     Active Substance: METAMIZOLE
     Indication: Product used for unknown indication
     Dosage: 500 MG, 2-0-2-0
     Route: 048
  7. PANTOPRAZOLE [Concomitant]
     Active Substance: PANTOPRAZOLE
     Indication: Product used for unknown indication
     Dosage: 40 MG, 1-0-0-0
     Route: 048
  8. PEMBROLIZUMAB [Concomitant]
     Active Substance: PEMBROLIZUMAB
     Indication: Product used for unknown indication
     Dosage: UNKNOWN
     Route: 042
  9. potassium chloride/macrogol/sodium chloride/sodium hydrogen carbonate [Concomitant]
     Indication: Product used for unknown indication
     Dosage: 1-0-0-0
     Route: 048
  10. SIMVASTATIN [Concomitant]
     Active Substance: SIMVASTATIN
     Indication: Product used for unknown indication
     Dosage: 40 MG, 0-0-0.5-0
     Route: 048

REACTIONS (5)
  - Nausea [Unknown]
  - Groin pain [Unknown]
  - Lower gastrointestinal haemorrhage [Unknown]
  - Anaemia [Unknown]
  - Pallor [Unknown]
